FAERS Safety Report 7331123-5 (Version None)
Quarter: 2011Q1

REPORT INFORMATION
  Report Type: 
  Country: None (occurrence: None)
  Receive Date: 20110228
  Receipt Date: 20110228
  Transmission Date: 20110831
  Serious: Yes (Other)
  Sender: FDA-Public Use
  Company Number: None

PATIENT
  Sex: Female
  Weight: 63.5036 kg

DRUGS (1)
  1. AMOXICILLIN [Suspect]
     Indication: TOOTH INFECTION
     Dosage: 500 MG CAPSULE 4 TIMES DAILY ORAL 24 CAPSULES
     Route: 048
     Dates: start: 20110126

REACTIONS (2)
  - RASH PRURITIC [None]
  - RASH GENERALISED [None]
